FAERS Safety Report 8949620 (Version 1)
Quarter: 2012Q4

REPORT INFORMATION
  Report Type: Report from Study
  Country: JP (occurrence: JP)
  Receive Date: 20121206
  Receipt Date: 20121206
  Transmission Date: 20130627
  Serious: Yes (Other)
  Sender: FDA-Public Use
  Company Number: JP-VERTEX PHARMACEUTICALS INC.-2012-025637

PATIENT
  Age: 58 Year
  Sex: Male

DRUGS (15)
  1. VX-950 (TELAPREVIR) [Suspect]
     Indication: CHRONIC HEPATITIS C
     Dosage: 2250 mg, qd
     Route: 048
     Dates: start: 20120529, end: 20120531
  2. VX-950 (TELAPREVIR) [Suspect]
     Dosage: 1500 mg, qd
     Route: 048
     Dates: start: 20120601, end: 20120730
  3. VX-950 (TELAPREVIR) [Suspect]
     Dosage: 750 mg, qd
     Route: 048
     Dates: start: 20120731, end: 20120821
  4. REBETOL [Suspect]
     Indication: CHRONIC HEPATITIS C
     Dosage: 800 mg, qd
     Route: 048
     Dates: start: 20120529, end: 20120702
  5. REBETOL [Suspect]
     Dosage: 600 mg, qd
     Route: 048
     Dates: start: 20120703, end: 20120730
  6. REBETOL [Suspect]
     Dosage: 400 mg, qd
     Route: 048
     Dates: start: 20120731
  7. PEGINTERFERON [Suspect]
     Indication: CHRONIC HEPATITIS C
     Dosage: 1.5 ?g/kg, qw
     Route: 058
     Dates: start: 20120529, end: 20120529
  8. PEGINTERFERON [Suspect]
     Dosage: 1.3 ?g/kg, qw
     Route: 058
     Dates: start: 20120605, end: 20120612
  9. PEGINTERFERON [Suspect]
     Dosage: 1.5 ?g/kg,qw
     Route: 058
     Dates: start: 20120619, end: 20120814
  10. PEGINTERFERON [Suspect]
     Dosage: 1.3 ?g/kg,qw
     Route: 058
     Dates: start: 20120821
  11. PARIET [Concomitant]
     Dosage: 10 mg, qd
     Route: 048
  12. DEPAS [Concomitant]
     Dosage: 1 mg, qd
     Route: 048
  13. ALOSITOL [Concomitant]
     Dosage: 100 mg, qd
     Route: 048
     Dates: end: 20120918
  14. ADOFEED [Concomitant]
     Dosage: UNK, prn
     Route: 051
     Dates: start: 20120601
  15. LACTEC                             /00490001/ [Concomitant]
     Dosage: 500 ml, qd
     Route: 042
     Dates: start: 20120731, end: 20120731

REACTIONS (1)
  - White blood cell count decreased [Not Recovered/Not Resolved]
